FAERS Safety Report 5481957-7 (Version None)
Quarter: 2007Q4

REPORT INFORMATION
  Report Type: 
  Country: None (occurrence: None)
  Receive Date: 20071005
  Receipt Date: 20070924
  Transmission Date: 20080405
  Serious: Yes (Life-Threatening)
  Sender: FDA-Public Use
  Company Number: 019129

PATIENT
  Age: 13 Month
  Sex: Male

DRUGS (1)
  1. SERTRALINE HCL [Suspect]
     Indication: ACCIDENTAL EXPOSURE
     Dosage: SINGLE, ORAL
     Route: 048

REACTIONS (7)
  - ACCIDENTAL DRUG INTAKE BY CHILD [None]
  - BALANCE DISORDER [None]
  - DEPRESSED LEVEL OF CONSCIOUSNESS [None]
  - GASTROINTESTINAL SOUNDS ABNORMAL [None]
  - INSOMNIA [None]
  - NYSTAGMUS [None]
  - SEROTONIN SYNDROME [None]
